FAERS Safety Report 5308318-5 (Version None)
Quarter: 2007Q2

REPORT INFORMATION
  Report Type: 
  Country: None (occurrence: None)
  Receive Date: 20070423
  Receipt Date: 20070423
  Transmission Date: 20071010
  Serious: Yes (Hospitalization)
  Sender: FDA-Public Use
  Company Number: None

PATIENT
  Sex: Female

DRUGS (3)
  1. CETUXIMAB [Suspect]
     Indication: PANCREATIC CARCINOMA
     Dosage: IV  (1850MG)
     Route: 042
     Dates: start: 20070417
  2. GEMCITABINE HCL [Suspect]
     Indication: PANCREATIC CARCINOMA
     Dosage: IV  (1850MG)
     Route: 042
     Dates: start: 20070417
  3. OXALIPLATIN [Suspect]
     Indication: PANCREATIC CARCINOMA
     Dosage: IV  (185MG)
     Route: 042
     Dates: start: 20070418

REACTIONS (1)
  - MYOCARDIAL INFARCTION [None]
